FAERS Safety Report 5709354-7 (Version None)
Quarter: 2008Q2

REPORT INFORMATION
  Report Type: 
  Country: None (occurrence: None)
  Receive Date: 20080418
  Receipt Date: 20080411
  Transmission Date: 20081010
  Serious: Yes (Death)
  Sender: FDA-Public Use
  Company Number: IT-GENENTECH-259266

PATIENT
  Age: 71 Year
  Sex: Male

DRUGS (3)
  1. RAPTIVA [Suspect]
     Indication: PSORIASIS
     Dosage: 0.6 ML, 1/WEEK
     Route: 058
     Dates: start: 20080307, end: 20080323
  2. LASIX [Concomitant]
     Indication: DRUG USE FOR UNKNOWN INDICATION
  3. TAREG [Concomitant]
     Indication: DRUG USE FOR UNKNOWN INDICATION

REACTIONS (1)
  - DEATH [None]
